FAERS Safety Report 5482371-0 (Version None)
Quarter: 2007Q4

REPORT INFORMATION
  Report Type: 
  Country: None (occurrence: None)
  Receive Date: 20071011
  Receipt Date: 20071008
  Transmission Date: 20080405
  Serious: Yes (Other)
  Sender: FDA-Public Use
  Company Number: A0687196A

PATIENT
  Age: 70 Year
  Sex: Male
  Weight: 74.8 kg

DRUGS (7)
  1. LAMICTAL [Suspect]
     Dosage: 100MG TWICE PER DAY
     Route: 048
  2. PLAVIX [Suspect]
     Dosage: 75MG PER DAY
     Route: 048
     Dates: start: 20040101
  3. LIPITOR [Concomitant]
     Dosage: 20MG PER DAY
     Route: 048
  4. LISINOPRIL [Concomitant]
     Dosage: 5MG PER DAY
     Route: 048
  5. ACETAMINOPHEN [Concomitant]
  6. BIMATOPROST [Concomitant]
     Dosage: 1DROP AT NIGHT
     Route: 047
  7. PREVACID [Concomitant]
     Dosage: 30MG PER DAY

REACTIONS (2)
  - CATARACT [None]
  - VISION BLURRED [None]
